FAERS Safety Report 9321752 (Version 1)
Quarter: 2013Q2

REPORT INFORMATION
  Report Type: Spontaneous
  Country: PL (occurrence: PL)
  Receive Date: 20130531
  Receipt Date: 20130531
  Transmission Date: 20140414
  Serious: Yes (Death, Other)
  Sender: FDA-Public Use
  Company Number: PHHY2013PL054371

PATIENT
  Age: 36 Year
  Sex: Female

DRUGS (7)
  1. CICLOSPORIN [Suspect]
     Indication: HISTIOCYTOSIS HAEMATOPHAGIC
  2. ETOPOSIDE [Suspect]
     Indication: HISTIOCYTOSIS HAEMATOPHAGIC
  3. DEXAMETHASONE [Suspect]
     Indication: HISTIOCYTOSIS HAEMATOPHAGIC
  4. FLUCONAZOLE [Suspect]
  5. AUGMENTIN [Suspect]
  6. ENCORTON [Suspect]
  7. MEROPENEM [Concomitant]

REACTIONS (5)
  - Cardiac arrest [Fatal]
  - Ventricular fibrillation [Fatal]
  - General physical health deterioration [Unknown]
  - Histiocytosis haematophagic [Unknown]
  - Drug ineffective [Unknown]
